FAERS Safety Report 5818326-3 (Version None)
Quarter: 2008Q3

REPORT INFORMATION
  Report Type: 
  Country: None (occurrence: None)
  Receive Date: 20080716
  Receipt Date: 20080710
  Transmission Date: 20090109
  Serious: Yes (Hospitalization, Other)
  Sender: FDA-Public Use
  Company Number: 107#01#2008-03423

PATIENT
  Age: 66 Year
  Sex: Male

DRUGS (1)
  1. DOLEVAR (TABLETS) (TRAMADOL + PARACETAMOL) [Suspect]
     Indication: BACK PAIN
     Dosage: 2 TABLETS ORAL
     Route: 048
     Dates: start: 20080627, end: 20080701

REACTIONS (7)
  - BOWEL MOVEMENT IRREGULARITY [None]
  - FAECES DISCOLOURED [None]
  - FATIGUE [None]
  - HOT FLUSH [None]
  - HYPOAESTHESIA [None]
  - OCULAR ICTERUS [None]
  - STOMACH DISCOMFORT [None]
